FAERS Safety Report 15946469 (Version 3)
Quarter: 2019Q1

REPORT INFORMATION
  Report Type: Report from Study
  Country: DE (occurrence: DE)
  Receive Date: 20190212
  Receipt Date: 20190308
  Transmission Date: 20190417
  Serious: No
  Sender: FDA-Public Use
  Company Number: DE-ROCHE-2262856

PATIENT
  Age: 36 Year
  Sex: Female

DRUGS (5)
  1. FAMPYRA [Concomitant]
     Active Substance: DALFAMPRIDINE
     Indication: MULTIPLE SCLEROSIS
     Dosage: INCREASE IN WALK DISTANCE IN MULTIPLE SCLEROSIS
     Route: 048
     Dates: start: 20120403
  2. MEMANTINE HYDROCHLORIDE. [Concomitant]
     Active Substance: MEMANTINE HYDROCHLORIDE
     Dosage: IMPROVEMENT OF VISION IN MULTIPLE SCLEROSIS
     Route: 048
     Dates: start: 20140403
  3. DARIFENACIN. [Concomitant]
     Active Substance: DARIFENACIN
     Indication: MULTIPLE SCLEROSIS
     Dosage: NEUROGENIC BLADDER DISORDER IN MS
     Route: 048
     Dates: start: 2012
  4. OCRELIZUMAB. [Suspect]
     Active Substance: OCRELIZUMAB
     Indication: MULTIPLE SCLEROSIS
     Route: 042
     Dates: start: 20180628, end: 20180711
  5. DARIFENACIN. [Concomitant]
     Active Substance: DARIFENACIN
     Indication: NEUROGENIC BLADDER

REACTIONS (2)
  - Genital infection [Recovering/Resolving]
  - Cystitis [Recovering/Resolving]

NARRATIVE: CASE EVENT DATE: 201807
